FAERS Safety Report 20790944 (Version 1)
Quarter: 2022Q2

REPORT INFORMATION
  Report Type: Spontaneous
  Country: KR (occurrence: KR)
  Receive Date: 20220505
  Receipt Date: 20220505
  Transmission Date: 20220721
  Serious: Yes (Hospitalization, Other)
  Sender: FDA-Public Use
  Company Number: KR-SLATE RUN PHARMACEUTICALS-22KR001066

PATIENT

DRUGS (11)
  1. VANCOMYCIN HYDROCHLORIDE [Suspect]
     Active Substance: VANCOMYCIN HYDROCHLORIDE
     Indication: Febrile neutropenia
     Dosage: UNK
  2. VORICONAZOLE [Suspect]
     Active Substance: VORICONAZOLE
     Indication: Disseminated aspergillosis
     Dosage: UNK
  3. CYTARABINE [Concomitant]
     Active Substance: CYTARABINE
     Indication: Acute myeloid leukaemia
     Dosage: HIGH DOSE (THIRD CONSOLIDATION)
  4. CYTARABINE [Concomitant]
     Active Substance: CYTARABINE
     Indication: Chemotherapy
     Dosage: HIGH DOSE (SECOND CONSOLIDATION)
  5. CYTARABINE [Concomitant]
     Active Substance: CYTARABINE
     Dosage: UNK
  6. IDARUBICIN [Concomitant]
     Active Substance: IDARUBICIN
     Indication: Acute myeloid leukaemia
  7. MEROPENEM [Concomitant]
     Active Substance: MEROPENEM
     Indication: Febrile neutropenia
  8. AMPHOTERICIN B [Concomitant]
     Active Substance: AMPHOTERICIN B
     Indication: Febrile neutropenia
     Dosage: 3 MILLIGRAM PER KILOGRAM, QD
  9. MIDOSTAURIN [Concomitant]
     Active Substance: MIDOSTAURIN
     Indication: Fms-like tyrosine kinase 3 positive
     Dosage: THIRD CONSOLIDATION
  10. MIDOSTAURIN [Concomitant]
     Active Substance: MIDOSTAURIN
     Indication: Chemotherapy
     Dosage: SECOND CONSOLIDATION
  11. MIDOSTAURIN [Concomitant]
     Active Substance: MIDOSTAURIN
     Dosage: 50 MILLIGRAM, BID (FIRST CONSOLIDATION)

REACTIONS (18)
  - Diaphragmatic rupture [Recovered/Resolved]
  - Splenic necrosis [Recovered/Resolved]
  - Renal necrosis [Recovered/Resolved]
  - Peritoneal necrosis [Recovered/Resolved]
  - Liver abscess [Unknown]
  - Gastrointestinal candidiasis [Unknown]
  - Herpes zoster disseminated [Unknown]
  - Generalised tonic-clonic seizure [Recovered/Resolved]
  - Treatment failure [Recovered/Resolved]
  - Cerebral aspergillosis [Recovering/Resolving]
  - Large intestine perforation [Recovered/Resolved]
  - Splenic infarction [Unknown]
  - Pancreatic infarction [Unknown]
  - Renal infarct [Unknown]
  - Disseminated aspergillosis [Recovering/Resolving]
  - Enterococcal bacteraemia [Unknown]
  - Pancytopenia [Recovered/Resolved]
  - Off label use [Unknown]
